FAERS Safety Report 10517368 (Version 1)
Quarter: 2014Q4

REPORT INFORMATION
  Report Type: Spontaneous
  Country: GR (occurrence: GR)
  Receive Date: 20141014
  Receipt Date: 20141014
  Transmission Date: 20150528
  Serious: Yes (Other)
  Sender: FDA-Public Use
  Company Number: GR-TEVA-515408ISR

PATIENT
  Age: 30 Year
  Sex: Female
  Weight: 70 kg

DRUGS (1)
  1. INDOMET [Suspect]
     Active Substance: INDOMETHACIN
     Indication: PREMATURE LABOUR
     Route: 054
     Dates: start: 20140816

REACTIONS (5)
  - Hypertension [Unknown]
  - Nausea [Unknown]
  - Dizziness [Unknown]
  - Syncope [Unknown]
  - Exposure during pregnancy [Unknown]
